FAERS Safety Report 5226313-1 (Version None)
Quarter: 2007Q1

REPORT INFORMATION
  Report Type: 
  Country: None (occurrence: None)
  Receive Date: 20070201
  Receipt Date: 20070122
  Transmission Date: 20070707
  Serious: Yes (Hospitalization)
  Sender: FDA-Public Use
  Company Number: US-ELI_LILLY_AND_COMPANY-US97044300A

PATIENT
  Age: 33 Year
  Sex: Female
  Weight: 80 kg

DRUGS (7)
  1. DEPAKOTE [Concomitant]
  2. KLONOPIN [Concomitant]
  3. WELLBUTRIN [Concomitant]
  4. ZYPREXA [Suspect]
     Indication: SCHIZOAFFECTIVE DISORDER
     Dosage: 10 MG, DAILY (1/D)
     Route: 048
     Dates: start: 19961101
  5. ZYPREXA [Suspect]
     Dosage: 20 MG, UNK
  6. ZYPREXA [Suspect]
     Dosage: 7.5 MG, UNK
  7. EFFEXOR                            /01233802/ [Concomitant]
     Dosage: UNK, UNKNOWN

REACTIONS (4)
  - INCREASED APPETITE [None]
  - MENTAL DISORDER [None]
  - METABOLIC DISORDER [None]
  - WEIGHT INCREASED [None]
